FAERS Safety Report 6818691-4 (Version None)
Quarter: 2010Q3

REPORT INFORMATION
  Report Type: 
  Country: None (occurrence: None)
  Receive Date: 20100706
  Receipt Date: 20100622
  Transmission Date: 20110219
  Serious: Yes (Other)
  Sender: FDA-Public Use
  Company Number: AT-ELI_LILLY_AND_COMPANY-AT201003004533

PATIENT
  Age: 23 Year
  Sex: Female

DRUGS (4)
  1. ZYPREXA [Suspect]
     Indication: PSYCHOTIC DISORDER
     Dosage: 5 MG, 2/D
     Route: 048
  2. ZYPREXA [Suspect]
     Dosage: UNK, UNKNOWN
  3. VALPROIC ACID [Concomitant]
     Indication: EPILEPSY
     Dosage: 250 MG, DAILY (1/D)
  4. LAMOTRIGINE [Concomitant]
     Indication: EPILEPSY
     Dosage: 100 MG, DAILY (1/D)

REACTIONS (1)
  - EPILEPSY [None]
